FAERS Safety Report 18590572 (Version 2)
Quarter: 2021Q1

REPORT INFORMATION
  Report Type: Report from Study
  Country: US (occurrence: US)
  Receive Date: 20201208
  Receipt Date: 20210330
  Transmission Date: 20210419
  Serious: Yes (Hospitalization)
  Sender: FDA-Public Use
  Company Number: US-DECIPHERA PHARMACEUTICALS LLC-2018-US-000037

PATIENT
  Age: 19 Year
  Sex: Female
  Weight: 62.6 kg

DRUGS (3)
  1. DCC?2618 [Suspect]
     Active Substance: RIPRETINIB
     Indication: MEDULLOBLASTOMA
     Dosage: 150 MG, QD
     Route: 048
     Dates: start: 20180409, end: 20180415
  2. VALPROIC ACID. [Concomitant]
     Active Substance: VALPROIC ACID
     Indication: PROPHYLAXIS
     Dosage: 500 MG, BID
     Route: 048
     Dates: start: 201802
  3. ATIVAN [Concomitant]
     Active Substance: LORAZEPAM
     Indication: PROPHYLAXIS
     Dosage: UNK
     Route: 048
     Dates: start: 201802

REACTIONS (1)
  - Pyramidal tract syndrome [Not Recovered/Not Resolved]

NARRATIVE: CASE EVENT DATE: 20180416
